FAERS Safety Report 25037915 (Version 1)
Quarter: 2025Q1

REPORT INFORMATION
  Report Type: Spontaneous
  Country: US (occurrence: US)
  Receive Date: 20250304
  Receipt Date: 20250304
  Transmission Date: 20250409
  Serious: Yes (Hospitalization, Other)
  Sender: FRESENIUS KABI
  Company Number: US-FreseniusKabi-FK202503449

PATIENT
  Age: 27 Year
  Sex: Female

DRUGS (1)
  1. METHOTREXATE [Suspect]
     Active Substance: METHOTREXATE
     Indication: Gestational trophoblastic tumour
     Dosage: DOSE: 0.4 MG/KG/DAY?5-DAY REGIMEN OF MTX (0.4 MG/KG/DAY) GIVEN EVERY 2 WEEKS
     Route: 042

REACTIONS (1)
  - Drug hypersensitivity [Recovered/Resolved]
